FAERS Safety Report 4318316-6 (Version None)
Quarter: 2004Q1

REPORT INFORMATION
  Report Type: 
  Country: None (occurrence: None)
  Receive Date: 20040317
  Receipt Date: 20040213
  Transmission Date: 20041129
  Serious: Yes (Hospitalization)
  Sender: FDA-Public Use
  Company Number: WAES 0402GBR00160

PATIENT

DRUGS (4)
  1. FOSAMAX [Suspect]
     Indication: OSTEOPOROSIS
     Route: 048
     Dates: start: 20020901, end: 20021001
  2. ESTROGENS (UNSPECIFIED) [Concomitant]
  3. RISEDRONATE SODIUM [Suspect]
     Indication: OSTEOPOROSIS
     Dates: end: 20021001
  4. THEOPHYLLINE [Suspect]
     Indication: ASTHMA
     Dates: start: 19950101

REACTIONS (2)
  - DRUG INTERACTION [None]
  - THERAPEUTIC AGENT TOXICITY [None]
